FAERS Safety Report 6719312-1 (Version None)
Quarter: 2010Q2

REPORT INFORMATION
  Report Type: 
  Country: None (occurrence: None)
  Receive Date: 20100511
  Receipt Date: 20100503
  Transmission Date: 20101027
  Serious: Yes (Other)
  Sender: FDA-Public Use
  Company Number: US-JNJCH-2010011046

PATIENT
  Age: 2 Year
  Sex: Male

DRUGS (1)
  1. CHILDREN'S BENADRYL ALLERGY [Suspect]
     Indication: COUGH
     Dosage: TEXT:UNKNOWN
     Route: 048

REACTIONS (4)
  - DYSKINESIA [None]
  - MUSCLE TWITCHING [None]
  - PRODUCT QUALITY ISSUE [None]
  - SLEEP DISORDER [None]
